FAERS Safety Report 8540132-X (Version None)
Quarter: 2012Q3

REPORT INFORMATION
  Report Type: 
  Country: None (occurrence: None)
  Receive Date: 20120726
  Receipt Date: 20120717
  Transmission Date: 20120928
  Serious: Yes (Hospitalization)
  Sender: FDA-Public Use
  Company Number: FR-ASTRAZENECA-2012SE50306

PATIENT
  Age: 63 Year
  Sex: Male

DRUGS (1)
  1. CRESTOR [Suspect]
     Route: 048
     Dates: start: 20120120, end: 20120229

REACTIONS (6)
  - PLEURAL EFFUSION [None]
  - PLEURAL FISTULA [None]
  - HEPATIC NECROSIS [None]
  - COLONIC FISTULA [None]
  - CHOLECYSTITIS [None]
  - PANCREATITIS ACUTE [None]
